FAERS Safety Report 19087631 (Version 2)
Quarter: 2021Q2

REPORT INFORMATION
  Report Type: Spontaneous
  Country: AU (occurrence: AU)
  Receive Date: 20210402
  Receipt Date: 20210514
  Transmission Date: 20210717
  Serious: Yes (Hospitalization)
  Sender: FDA-Public Use
  Company Number: AU-ASTRAZENECA-2021A224047

PATIENT
  Age: 884 Month
  Sex: Male

DRUGS (2)
  1. BYDUREON [Suspect]
     Active Substance: EXENATIDE
     Route: 065
     Dates: start: 2020
  2. BYDUREON [Suspect]
     Active Substance: EXENATIDE
     Route: 065
     Dates: start: 202103

REACTIONS (4)
  - Product dose omission issue [Unknown]
  - Product packaging quantity issue [Unknown]
  - Weight decreased [Recovering/Resolving]
  - Cholelithiasis [Unknown]

NARRATIVE: CASE EVENT DATE: 202103
